FAERS Safety Report 21022529 (Version 1)
Quarter: 2022Q2

REPORT INFORMATION
  Report Type: Spontaneous
  Country: ES (occurrence: ES)
  Receive Date: 20220629
  Receipt Date: 20220629
  Transmission Date: 20220721
  Serious: Yes (Hospitalization)
  Sender: FDA-Public Use
  Company Number: None

PATIENT
  Age: 47 Year
  Sex: Male

DRUGS (5)
  1. IRINOTECAN [Suspect]
     Active Substance: IRINOTECAN
     Indication: Product used for unknown indication
     Dosage: STRENGTH: 20 MG/ML, 1 VIAL OF 15 ML, SIXTH CYCLE
     Route: 042
     Dates: start: 20220119, end: 20220121
  2. FLUOROURACIL [Concomitant]
     Active Substance: FLUOROURACIL
     Dosage: STRENGTH: 50 MG/ML SOLUTION FOR INJECTION OR FOR INFUSION EFG, 1 VIAL OF 100 ML
     Route: 042
     Dates: start: 20220119, end: 20220121
  3. AVASTIN [Concomitant]
     Active Substance: BEVACIZUMAB
     Dosage: STRENGTH: 25 MG/ML, 1 VIAL OF 4 ML, SIXTH CYCLE
     Route: 042
     Dates: start: 20220119, end: 20220121
  4. LEUCOVORIN CALCIUM [Concomitant]
     Active Substance: LEUCOVORIN CALCIUM
     Dosage: STRENGTH: 10 MG/ML, 1 VIAL OF 30 ML
  5. OXALIPLATIN [Concomitant]
     Active Substance: OXALIPLATIN
     Dosage: STRENGTH: 5 MG/ML, 1 VIAL OF 40 ML, SIXTH CYCLE
     Route: 042
     Dates: start: 20220119, end: 20220121

REACTIONS (1)
  - Enteritis [Recovered/Resolved]

NARRATIVE: CASE EVENT DATE: 20220225
